FAERS Safety Report 20481452 (Version 1)
Quarter: 2022Q1

REPORT INFORMATION
  Report Type: Spontaneous
  Country: US (occurrence: US)
  Receive Date: 20220216
  Receipt Date: 20220216
  Transmission Date: 20220423
  Serious: Yes (Other)
  Sender: FDA-Public Use
  Company Number: US-SUNOVION-2022SUN000435

PATIENT
  Age: 51 Year
  Sex: Female
  Weight: 99.773 kg

DRUGS (2)
  1. APTIOM [Suspect]
     Active Substance: ESLICARBAZEPINE ACETATE
     Indication: Seizure
     Dosage: UNK
     Route: 048
  2. APTIOM [Suspect]
     Active Substance: ESLICARBAZEPINE ACETATE
     Dosage: 800 MG, QD
     Route: 048

REACTIONS (6)
  - Breast cancer [Not Recovered/Not Resolved]
  - Necrosis [Not Recovered/Not Resolved]
  - Seizure [Not Recovered/Not Resolved]
  - Cerebral disorder [Not Recovered/Not Resolved]
  - Head discomfort [Unknown]
  - Imperception [Unknown]

NARRATIVE: CASE EVENT DATE: 20220106
